FAERS Safety Report 8459199-2 (Version None)
Quarter: 2012Q2

REPORT INFORMATION
  Report Type: 
  Country: None (occurrence: None)
  Receive Date: 20120622
  Receipt Date: 20120619
  Transmission Date: 20120825
  Serious: Yes (Other)
  Sender: FDA-Public Use
  Company Number: US-BAYER-2012-060493

PATIENT
  Sex: Female

DRUGS (1)
  1. CLIMARA [Suspect]

REACTIONS (4)
  - ABDOMINAL PAIN UPPER [None]
  - PANCREATITIS [None]
  - HEADACHE [None]
  - GROIN PAIN [None]
